FAERS Safety Report 7048469-0 (Version None)
Quarter: 2010Q4

REPORT INFORMATION
  Report Type: 
  Country: None (occurrence: None)
  Receive Date: 20101015
  Receipt Date: 20101004
  Transmission Date: 20110411
  Serious: Yes (Hospitalization)
  Sender: FDA-Public Use
  Company Number: FR-GENENTECH-307809

PATIENT
  Sex: Male
  Weight: 95 kg

DRUGS (28)
  1. RITUXIMAB [Suspect]
     Indication: MANTLE CELL LYMPHOMA
     Dosage: 700 MG, UNK
     Route: 065
     Dates: start: 20091110, end: 20100116
  2. RITUXIMAB [Suspect]
     Dosage: 700 MG, UNK
     Route: 065
     Dates: start: 20100117
  3. RITUXIMAB [Suspect]
     Dosage: UNK
     Route: 065
     Dates: start: 20100302, end: 20100302
  4. DEXAMETHASONE [Suspect]
     Indication: MANTLE CELL LYMPHOMA
     Dosage: 40 MG/KG, UNK
     Route: 065
     Dates: start: 20091107, end: 20091110
  5. DEXAMETHASONE [Suspect]
     Dosage: FOURTH RDHAP CYCLE
     Route: 065
     Dates: start: 20100116, end: 20100119
  6. CISPLATIN [Suspect]
     Indication: MANTLE CELL LYMPHOMA
     Dosage: 200 MG, UNK
     Route: 042
     Dates: start: 20091107
  7. CISPLATIN [Suspect]
     Dosage: 200 MG, UNK
     Route: 042
     Dates: start: 20100116, end: 20100119
  8. CYTARABINE [Suspect]
     Indication: MANTLE CELL LYMPHOMA
     Dosage: 4 G, UNK
     Route: 065
     Dates: start: 20091107, end: 20091108
  9. CYTARABINE [Suspect]
     Dosage: 4 G, UNK
     Route: 065
     Dates: start: 20100116, end: 20100117
  10. ETOPOSIDE [Suspect]
     Indication: MANTLE CELL LYMPHOMA
     Dosage: UNK
     Route: 042
     Dates: start: 20100304, end: 20100307
  11. CARMUSTINE [Suspect]
     Indication: MANTLE CELL LYMPHOMA
     Dosage: UNK
     Route: 042
     Dates: start: 20100303, end: 20100303
  12. ARACYTINE [Suspect]
     Indication: MANTLE CELL LYMPHOMA
     Dosage: UNK
     Route: 042
     Dates: start: 20100304, end: 20100307
  13. MELPHALAN HYDROCHLORIDE [Suspect]
     Indication: MANTLE CELL LYMPHOMA
     Dosage: UNK
     Route: 042
     Dates: start: 20100308
  14. LEVOTHYROXINE SODIUM [Concomitant]
     Indication: HYPOTHYROIDISM
     Dosage: UNK
     Route: 048
  15. LEVOTHYROXINE SODIUM [Concomitant]
     Dosage: UNK
     Route: 048
  16. SERESTA [Concomitant]
     Indication: DEPRESSION
     Dosage: UNK
     Route: 048
  17. VALACYCLOVIR HYDROCHLORIDE [Concomitant]
     Indication: ANTIVIRAL PROPHYLAXIS
     Dosage: 500 MG, BID
     Route: 048
     Dates: start: 20091106
  18. BACTRIM DS [Concomitant]
     Indication: PROPHYLAXIS
     Dosage: UNK
     Route: 048
     Dates: start: 20091106
  19. SPECIAFOLDINE [Concomitant]
     Indication: MEDICAL DIET
     Dosage: UNK
     Route: 048
     Dates: start: 20091106
  20. AMAREL [Concomitant]
     Indication: TYPE 2 DIABETES MELLITUS
     Dosage: UNK
     Route: 048
     Dates: start: 20020101
  21. AMAREL [Concomitant]
     Dosage: UNK
     Route: 048
     Dates: start: 20020101
  22. INIPOMP [Concomitant]
     Indication: PROPHYLAXIS
     Dosage: UNK
     Route: 048
     Dates: start: 20091106
  23. METFORMIN [Concomitant]
     Indication: TYPE 2 DIABETES MELLITUS
     Dosage: 850 MG, TID
     Route: 048
  24. FRACTAL [Concomitant]
     Indication: HYPERCHOLESTEROLAEMIA
     Dosage: UNK
     Route: 048
  25. PERINDOPRIL ERBUMINE [Concomitant]
     Indication: HYPERTENSION
     Dosage: UNK
     Route: 048
  26. AMLODIPINE [Concomitant]
     Indication: HYPERTENSION
     Dosage: UNK
     Route: 048
  27. NORSET [Concomitant]
     Indication: DEPRESSION
     Dosage: UNK
     Route: 048
  28. NORSET [Concomitant]
     Dosage: 15 MG, BID
     Route: 048
     Dates: start: 20100907

REACTIONS (4)
  - DEPRESSION [None]
  - HAEMORRHAGIC ANAEMIA [None]
  - PHLEBOTOMY [None]
  - SUICIDE ATTEMPT [None]
